FAERS Safety Report 7673091-2 (Version None)
Quarter: 2011Q3

REPORT INFORMATION
  Report Type: 
  Country: None (occurrence: None)
  Receive Date: 20110810
  Receipt Date: 20110801
  Transmission Date: 20111222
  Serious: Yes (Hospitalization)
  Sender: FDA-Public Use
  Company Number: US-BIOGENIDEC-2011BI029160

PATIENT
  Age: 47 Year
  Sex: Female

DRUGS (2)
  1. TYSABRI [Suspect]
     Indication: MULTIPLE SCLEROSIS
     Route: 042
     Dates: end: 20110531
  2. TYSABRI [Suspect]
     Route: 042
     Dates: start: 20080815, end: 20081113

REACTIONS (5)
  - BRONCHITIS [None]
  - SINUSITIS [None]
  - CLOSTRIDIAL INFECTION [None]
  - SEPSIS [None]
  - SURGERY [None]
